FAERS Safety Report 5680898-X (Version None)
Quarter: 2008Q1

REPORT INFORMATION
  Report Type: 
  Country: None (occurrence: None)
  Receive Date: 20080326
  Receipt Date: 20080317
  Transmission Date: 20080703
  Serious: Yes (Hospitalization, Other)
  Sender: FDA-Public Use
  Company Number: US-PFIZER INC-2007043808

PATIENT
  Sex: Male

DRUGS (1)
  1. BEXTRA [Suspect]
     Indication: PSORIATIC ARTHROPATHY
     Route: 048

REACTIONS (4)
  - ANXIETY DISORDER [None]
  - CARDIAC ANEURYSM [None]
  - DEPRESSION [None]
  - MYOCARDIAL INFARCTION [None]
